FAERS Safety Report 4561654-2 (Version None)
Quarter: 2005Q1

REPORT INFORMATION
  Report Type: 
  Country: None (occurrence: None)
  Receive Date: 20050118
  Receipt Date: 20040713
  Transmission Date: 20050727
  Serious: Yes (Other)
  Sender: FDA-Public Use
  Company Number: HQWYE236619JUL04

PATIENT
  Age: 63 Year
  Sex: Female

DRUGS (8)
  1. PREMPRO [Suspect]
     Indication: OSTEOPOROSIS
  2. PREMPRO [Suspect]
     Indication: PROPHYLAXIS
  3. PREMARIN [Suspect]
     Indication: MENOPAUSAL SYMPTOMS
  4. PREMARIN [Suspect]
     Indication: OSTEOPOROSIS
  5. PREMARIN [Suspect]
     Indication: PROPHYLAXIS
  6. PROVERA [Suspect]
     Indication: MENOPAUSAL SYMPTOMS
  7. PROVERA [Suspect]
     Indication: OSTEOPOROSIS
  8. PROVERA [Suspect]
     Indication: PROPHYLAXIS

REACTIONS (1)
  - BREAST CANCER [None]
